FAERS Safety Report 4945318-9 (Version None)
Quarter: 2006Q1

REPORT INFORMATION
  Report Type: 
  Country: None (occurrence: None)
  Receive Date: 20060315
  Receipt Date: 20060315
  Transmission Date: 20060701
  Serious: Yes (Hospitalization)
  Sender: FDA-Public Use
  Company Number: None

PATIENT
  Age: 52 Year
  Sex: Male

DRUGS (1)
  1. GLIADEL [Suspect]
     Indication: GLIOMA
     Dosage: ONCE INTRACEREBRAL
     Route: 018

REACTIONS (2)
  - BRAIN OEDEMA [None]
  - HEADACHE [None]
